FAERS Safety Report 9179682 (Version 2)
Quarter: 2014Q2

REPORT INFORMATION
  Report Type: Report from Study
  Country: JP (occurrence: JP)
  Receive Date: 20130321
  Receipt Date: 20140625
  Transmission Date: 20141212
  Serious: Yes (Hospitalization, Other)
  Sender: FDA-Public Use
  Company Number: JP-AMGEN-JPNCT2013019353

PATIENT
  Age: 64 Year
  Sex: Male
  Weight: 55 kg

DRUGS (32)
  1. ETANERCEPT [Suspect]
     Indication: RHEUMATOID ARTHRITIS
     Dosage: 25 MG, QWK
     Route: 058
     Dates: start: 20090730, end: 20100520
  2. METHOTREXATE [Concomitant]
     Indication: RHEUMATOID ARTHRITIS
     Dosage: 8 MG, WEEKLY
     Route: 048
     Dates: start: 2009
  3. METHOTREXATE [Concomitant]
     Dosage: 7.5 MG, WEEKLY
     Route: 048
     Dates: start: 20090513, end: 20090528
  4. METHOTREXATE [Concomitant]
     Dosage: 6 MG, WEEKLY
     Route: 048
     Dates: start: 20090528
  5. TOCILIZUMAB [Concomitant]
     Indication: RHEUMATOID ARTHRITIS
     Dosage: 440 MG,1 IN 4 WEEKS
     Route: 041
     Dates: start: 20090205, end: 20090205
  6. TOCILIZUMAB [Concomitant]
     Dosage: 440 MG,1 IN 4 WEEKS
     Route: 041
     Dates: start: 20090305, end: 20090305
  7. PREDNISOLONE [Concomitant]
     Indication: RHEUMATOID ARTHRITIS
     Dosage: 10 MG, 1X/DAY
     Route: 048
  8. TACROLIMUS [Concomitant]
     Dosage: UNK
     Route: 065
  9. METOLATE [Concomitant]
     Indication: RHEUMATOID ARTHRITIS
     Dosage: 8 MG, WEEKLY
     Route: 048
  10. METOLATE [Concomitant]
     Dosage: 6 MG, WEEKLY
     Route: 048
     Dates: start: 20090528
  11. ISCOTIN                            /00030201/ [Concomitant]
     Indication: ANTIBIOTIC PROPHYLAXIS
     Dosage: DOSE FORM: PERORAL AGENT 300 G, 1X/DAY
     Route: 048
     Dates: start: 20090402
  12. ALFAROL [Concomitant]
     Indication: OSTEOPOROSIS
     Dosage: 1 UG, 1X/DAY
     Route: 048
  13. LASIX                              /00032601/ [Concomitant]
     Indication: HYPERTENSION
     Dosage: DOSEFORM: PERORAL AGENT 40 MG, 1X/DAY
     Route: 048
  14. FOLIAMIN [Concomitant]
     Indication: FOLATE DEFICIENCY
     Dosage: DOSEFORM: PERORAL AGENT 5 MG, 1X/DAY
     Route: 048
  15. GLAKAY [Concomitant]
     Indication: OSTEOPOROSIS
     Dosage: 45 MG, 1X/DAY
     Route: 048
  16. BONALON [Concomitant]
     Indication: OSTEOPOROSIS
     Dosage: 5 MG, 1X/DAY
     Route: 048
  17. CRESTOR [Concomitant]
     Indication: DYSLIPIDAEMIA
     Dosage: 2.5 MG, 1X/DAY
     Route: 048
  18. LOXONIN [Concomitant]
     Indication: RHEUMATOID ARTHRITIS
     Dosage: DOSAGE FORM: PERORAL AGENT 180 MG, 1X/DAY
     Route: 048
  19. ZYLORIC [Concomitant]
     Indication: HYPERURICAEMIA
     Dosage: 100 MG, 1X/DAY
     Route: 048
  20. ZANTAC [Concomitant]
     Indication: GASTRITIS
     Dosage: 300 MG, 1X/DAY
     Route: 048
     Dates: end: 20100310
  21. AMOBAN [Concomitant]
     Indication: INSOMNIA
     Dosage: 7.5 MG, 1X/DAY
     Route: 048
  22. FLIVAS [Concomitant]
     Indication: BENIGN PROSTATIC HYPERPLASIA
     Dosage: DRUG: FLIVAS OD. 75 MG, 1X/DAY
     Route: 048
     Dates: start: 20090219, end: 20090304
  23. METHYCOBAL [Concomitant]
     Indication: NEUROPATHY PERIPHERAL
     Dosage: DOSEFORM: PERORAL AGENT 1500 UG, 1X/DAY
     Route: 048
  24. HARNAL [Concomitant]
     Indication: BENIGN PROSTATIC HYPERPLASIA
     Dosage: DRUG REPORTED AS HARNAL D (0.2 MG, 1 IN 1D)
     Route: 048
     Dates: start: 20090305
  25. CLINORIL [Concomitant]
     Indication: RHEUMATOID ARTHRITIS
     Dosage: 300 MG, 1X/DAY
     Route: 048
  26. LAC B [Concomitant]
     Dosage: 3 G, 1X/DAY
     Route: 048
     Dates: start: 20090525, end: 20090816
  27. URSO                               /00465701/ [Concomitant]
     Dosage: 300 MG, 1X/DAY
     Route: 048
     Dates: start: 20090526, end: 20090706
  28. TAKEPRON [Concomitant]
     Indication: GASTRITIS
     Dosage: 30 MG, 1X/DAY
     Route: 048
  29. LIVALO [Concomitant]
     Indication: DYSLIPIDAEMIA
     Dosage: 2 MG, 1X/DAY
     Route: 048
  30. MUCOSTA [Concomitant]
     Dosage: 300 MG, 1X/DAY
     Route: 048
  31. VALTREX [Concomitant]
     Dosage: 2000 MG, 1X/DAY
     Route: 048
     Dates: start: 20100330, end: 20100405
  32. URALYT                             /01779901/ [Concomitant]
     Dosage: 6 DF, 1X/DAY
     Route: 048

REACTIONS (10)
  - Disseminated intravascular coagulation [Recovered/Resolved]
  - Hydronephrosis [Recovered/Resolved]
  - Pyelonephritis [Recovered/Resolved]
  - Platelet count decreased [Recovered/Resolved]
  - Sepsis [Recovering/Resolving]
  - Cholecystitis [Recovered/Resolved]
  - Cholecystitis acute [Recovered/Resolved]
  - Spinal compression fracture [Recovered/Resolved]
  - Haemorrhage subcutaneous [Recovered/Resolved]
  - Gastric ulcer [Recovered/Resolved]
